FAERS Safety Report 7703522-0 (Version None)
Quarter: 2011Q3

REPORT INFORMATION
  Report Type: 
  Country: None (occurrence: None)
  Receive Date: 20110823
  Receipt Date: 20110818
  Transmission Date: 20111222
  Serious: Yes (Other)
  Sender: FDA-Public Use
  Company Number: DE-SANOFI-AVENTIS-2011SA052732

PATIENT
  Age: 47 Year
  Sex: Female

DRUGS (1)
  1. TAXOTERE [Suspect]
     Route: 041
     Dates: start: 20110101, end: 20110101

REACTIONS (1)
  - VOCAL CORD PARALYSIS [None]
